FAERS Safety Report 18886045 (Version 1)
Quarter: 2021Q1

REPORT INFORMATION
  Report Type: Spontaneous
  Country: IN (occurrence: IN)
  Receive Date: 20210212
  Receipt Date: 20210212
  Transmission Date: 20210420
  Serious: Yes (Other)
  Sender: FDA-Public Use
  Company Number: IN-PFIZER INC-2021107156

PATIENT
  Age: 25 Year
  Sex: Male

DRUGS (4)
  1. PHENYTOIN. [Suspect]
     Active Substance: PHENYTOIN
     Indication: SEIZURE
     Dosage: UNK
  2. DABIGATRAN [Interacting]
     Active Substance: DABIGATRAN
     Indication: CEREBRAL VENOUS THROMBOSIS
     Dosage: UNK
  3. DABIGATRAN [Interacting]
     Active Substance: DABIGATRAN
     Indication: SEIZURE
  4. PHENYTOIN. [Interacting]
     Active Substance: PHENYTOIN
     Indication: CEREBRAL VENOUS THROMBOSIS

REACTIONS (3)
  - Disease recurrence [Unknown]
  - Cerebral venous thrombosis [Unknown]
  - Drug interaction [Unknown]
